FAERS Safety Report 11157968 (Version 1)
Quarter: 2015Q2

REPORT INFORMATION
  Report Type: Spontaneous
  Country: DE (occurrence: None)
  Receive Date: 20150601
  Receipt Date: 20150601
  Transmission Date: 20150821
  Serious: Yes (Other)
  Sender: FDA-Public Use
  Company Number: DE-H14001-15-00842

PATIENT
  Sex: Male

DRUGS (5)
  1. FULIDS (ALL OTHER THERAPEUTIC PRODUCTS) [Concomitant]
  2. IRINOTECAN [Suspect]
     Active Substance: IRINOTECAN
     Indication: METASTASES TO LUNG
  3. CORTISONE [Concomitant]
     Active Substance: CORTISONE\HYDROCORTISONE
  4. LEUCOVORIN [Suspect]
     Active Substance: LEUCOVORIN
     Indication: METASTASES TO LUNG
  5. 5-FLUOROURACIL [Suspect]
     Active Substance: FLUOROURACIL
     Indication: METASTASES TO LUNG

REACTIONS (6)
  - Chronic kidney disease [None]
  - Acute kidney injury [None]
  - Hypersensitivity vasculitis [None]
  - Toxicity to various agents [None]
  - IgA nephropathy [None]
  - Haemodialysis [None]
